FAERS Safety Report 15422964 (Version 1)
Quarter: 2018Q3

REPORT INFORMATION
  Report Type: Spontaneous
  Country: US (occurrence: US)
  Receive Date: 20180925
  Receipt Date: 20180925
  Transmission Date: 20181010
  Serious: No
  Sender: FDA-Public Use
  Company Number: US-TEVA-2018-US-956184

PATIENT
  Sex: Female

DRUGS (1)
  1. DIAZEPAM. [Suspect]
     Active Substance: DIAZEPAM
     Route: 065

REACTIONS (6)
  - Pain [Unknown]
  - Movement disorder [Unknown]
  - Panic disorder [Unknown]
  - Vomiting [Unknown]
  - Migraine [Unknown]
  - Drug ineffective [Unknown]
